FAERS Safety Report 5290036-3 (Version None)
Quarter: 2007Q1

REPORT INFORMATION
  Report Type: 
  Country: None (occurrence: None)
  Receive Date: 20070330
  Receipt Date: 20070321
  Transmission Date: 20070707
  Serious: Yes (Life-Threatening, Hospitalization)
  Sender: FDA-Public Use
  Company Number: 2007RL000016

PATIENT
  Age: 70 Year
  Sex: Male

DRUGS (7)
  1. OMACOR [Suspect]
     Indication: HYPERTRIGLYCERIDAEMIA
     Dosage: 1000 MG; QD; PO
     Route: 048
     Dates: start: 20061220, end: 20061229
  2. GLYBURIDE [Suspect]
     Indication: DIABETES MELLITUS NON-INSULIN-DEPENDENT
     Dosage: 15 MG; QD
     Dates: start: 20050713
  3. AVANDIA [Suspect]
     Indication: DIABETES MELLITUS NON-INSULIN-DEPENDENT
     Dosage: 4 MG; QD
     Dates: start: 20051004
  4. OLMETEC [Concomitant]
  5. LIPANTHYL [Concomitant]
  6. INDAPAMIDE [Concomitant]
  7. TEMERIT [Concomitant]

REACTIONS (1)
  - HYPOGLYCAEMIC COMA [None]
